FAERS Safety Report 5003639-8 (Version None)
Quarter: 2006Q2

REPORT INFORMATION
  Report Type: 
  Country: None (occurrence: None)
  Receive Date: 20060516
  Receipt Date: 20050218
  Transmission Date: 20061013
  Serious: Yes (Hospitalization, Disabling)
  Sender: FDA-Public Use
  Company Number: US-MERCK-0502USA02711

PATIENT
  Age: 58 Year
  Sex: Male
  Weight: 84 kg

DRUGS (16)
  1. VIOXX [Suspect]
     Indication: OSTEOARTHRITIS
     Route: 048
     Dates: start: 19990101, end: 20030101
  2. ADVICOR [Concomitant]
     Route: 065
  3. CARDIZEM [Concomitant]
     Route: 065
  4. LIPITOR [Concomitant]
     Route: 065
  5. ADVIL [Concomitant]
     Route: 065
  6. LISINOPRIL [Concomitant]
     Route: 065
  7. WELLBUTRIN [Concomitant]
     Route: 048
     Dates: start: 19991028
  8. ALBUTEROL [Concomitant]
     Route: 065
     Dates: start: 19991028
  9. ACTIFED [Concomitant]
     Route: 065
     Dates: start: 19991028
  10. INTEGRILIN [Concomitant]
     Route: 042
     Dates: start: 20030303
  11. HEPARIN [Concomitant]
     Route: 042
     Dates: start: 20030303
  12. ASPIRIN [Concomitant]
     Route: 065
     Dates: start: 20030303
  13. TOPROL-XL [Concomitant]
     Route: 065
     Dates: start: 20030303
  14. PRAVACHOL [Concomitant]
     Route: 065
     Dates: start: 20030303
  15. NITROGLYCERIN [Concomitant]
     Route: 042
     Dates: start: 20030303
  16. PLAVIX [Concomitant]
     Route: 065
     Dates: start: 20030303

REACTIONS (21)
  - ACUTE CORONARY SYNDROME [None]
  - ACUTE MYOCARDIAL INFARCTION [None]
  - ANAEMIA [None]
  - ANGINA UNSTABLE [None]
  - ARRHYTHMIA [None]
  - ASTHMA [None]
  - ATRIAL FIBRILLATION [None]
  - ATRIOVENTRICULAR BLOCK SECOND DEGREE [None]
  - CARDIAC FAILURE CONGESTIVE [None]
  - CHEMICAL POISONING [None]
  - CHRONIC OBSTRUCTIVE PULMONARY DISEASE [None]
  - CORONARY ARTERY DISEASE [None]
  - CORONARY ARTERY RESTENOSIS [None]
  - DIZZINESS [None]
  - DUODENAL ULCER [None]
  - INJURY [None]
  - ISCHAEMIC CARDIOMYOPATHY [None]
  - MYOCARDIAL INFARCTION [None]
  - PULMONARY OEDEMA [None]
  - SYNCOPE [None]
  - UPPER GASTROINTESTINAL HAEMORRHAGE [None]
